FAERS Safety Report 7952455-3 (Version None)
Quarter: 2011Q4

REPORT INFORMATION
  Report Type: 
  Country: None (occurrence: None)
  Receive Date: 20111201
  Receipt Date: 20110210
  Transmission Date: 20120403
  Serious: Yes (Death, Life-Threatening, Hospitalization)
  Sender: FDA-Public Use
  Company Number: JP-BAYER-2011-008927

PATIENT
  Age: 60 Year
  Sex: Male

DRUGS (9)
  1. LOXONIN [Concomitant]
     Dosage: 60 MG, PRN
     Route: 048
     Dates: start: 20090601
  2. TOPSYM [Concomitant]
     Dosage: UNK
     Route: 061
     Dates: start: 20100305
  3. FAMOTIDINE [Concomitant]
     Dosage: DAILY DOSE 20 MG
     Route: 065
     Dates: start: 20080101
  4. SELBEX [Concomitant]
     Dosage: 60 MG, PRN
     Route: 048
     Dates: start: 20090601
  5. PETROLATUM SALICYLICUM [Concomitant]
     Dosage: UNK
     Route: 061
     Dates: start: 20100227
  6. KERATINAMIN [Concomitant]
     Dosage: UNK
     Route: 061
     Dates: start: 20100305
  7. HIRUDOID [Concomitant]
     Dosage: UNK
     Route: 061
     Dates: start: 20100129
  8. SORAFENIB [Suspect]
     Indication: HEPATIC NEOPLASM MALIGNANT
     Dosage: 400 MG, BID
     Route: 048
     Dates: start: 20100129, end: 20101230
  9. NORVASC [Concomitant]
     Dosage: DAILY DOSE 5 MG
     Route: 048
     Dates: start: 20030101

REACTIONS (7)
  - PALMAR-PLANTAR ERYTHRODYSAESTHESIA SYNDROME [None]
  - RESPIRATORY DISORDER [None]
  - FATIGUE [None]
  - HEPATIC FUNCTION ABNORMAL [None]
  - ALOPECIA [None]
  - CEREBRAL HAEMORRHAGE [None]
  - OROPHARYNGEAL PAIN [None]
